FAERS Safety Report 16256300 (Version 1)
Quarter: 2019Q2

REPORT INFORMATION
  Report Type: Report from Study
  Country: US (occurrence: US)
  Receive Date: 20190430
  Receipt Date: 20190430
  Transmission Date: 20190711
  Serious: Yes (Other)
  Sender: FDA-Public Use
  Company Number: US-GILEAD-2019-0399278

PATIENT
  Age: 15 Year
  Sex: Female

DRUGS (4)
  1. REMODULIN [Concomitant]
     Active Substance: TREPROSTINIL
  2. COUMADIN [Concomitant]
     Active Substance: WARFARIN SODIUM
  3. TADALAFIL. [Concomitant]
     Active Substance: TADALAFIL
  4. AMBRISENTAN [Suspect]
     Active Substance: AMBRISENTAN
     Indication: PRODUCT USED FOR UNKNOWN INDICATION
     Dosage: 10 MG, QD
     Route: 065
     Dates: start: 20140703

REACTIONS (6)
  - Central venous catheterisation [Unknown]
  - Seasonal allergy [Not Recovered/Not Resolved]
  - Sneezing [Not Recovered/Not Resolved]
  - Device leakage [Not Recovered/Not Resolved]
  - Off label use [Not Recovered/Not Resolved]
  - Device breakage [Unknown]

NARRATIVE: CASE EVENT DATE: 20140703
